FAERS Safety Report 12304578 (Version 8)
Quarter: 2017Q2

REPORT INFORMATION
  Report Type: Report from Study
  Country: DE (occurrence: DE)
  Receive Date: 20160426
  Receipt Date: 20170609
  Transmission Date: 20170830
  Serious: Yes (Hospitalization)
  Sender: FDA-Public Use
  Company Number: PHHO2016DE005882

PATIENT
  Sex: Female
  Weight: 90.5 kg

DRUGS (15)
  1. NVA237 [Suspect]
     Active Substance: GLYCOPYRROLATE
     Dosage: NO TREATMENT
     Route: 055
     Dates: start: 20160408, end: 20160411
  2. METFORMIN [Concomitant]
     Active Substance: METFORMIN HYDROCHLORIDE
     Indication: TYPE 2 DIABETES MELLITUS
     Dosage: UNK
     Route: 048
     Dates: start: 20160219
  3. ASPIRIN. [Concomitant]
     Active Substance: ASPIRIN
     Indication: CARDIOVASCULAR EVENT PROPHYLAXIS
     Dosage: UNK
     Route: 048
     Dates: start: 1998
  4. BERLINSULIN [Concomitant]
     Active Substance: INSULIN HUMAN
     Indication: TYPE 2 DIABETES MELLITUS
     Dosage: UNK
     Route: 058
     Dates: start: 2004
  5. NVA237 [Suspect]
     Active Substance: GLYCOPYRROLATE
     Dosage: NO TREATMENT
     Route: 055
     Dates: start: 20151201, end: 20151201
  6. NVA237 [Suspect]
     Active Substance: GLYCOPYRROLATE
     Indication: CHRONIC OBSTRUCTIVE PULMONARY DISEASE
     Dosage: 44 UG, QD IN THE EVENING
     Route: 055
     Dates: start: 20151015, end: 20160407
  7. NVA237 [Suspect]
     Active Substance: GLYCOPYRROLATE
     Dosage: 1 INHALATION DOSING IN MORNING
     Route: 055
     Dates: start: 20151202, end: 20160103
  8. NVA237 [Suspect]
     Active Substance: GLYCOPYRROLATE
     Dosage: 1 INHALATION DOSING IN MORNING
     Route: 055
     Dates: start: 20160412
  9. NVA237 [Suspect]
     Active Substance: GLYCOPYRROLATE
     Dosage: NO TREATMENT
     Route: 055
     Dates: start: 20160104, end: 20160104
  10. SIMVASTATINE [Concomitant]
     Active Substance: SIMVASTATIN
     Indication: HYPERCHOLESTEROLAEMIA
     Dosage: UNK
     Route: 048
     Dates: start: 20150926
  11. NVA237 [Suspect]
     Active Substance: GLYCOPYRROLATE
     Dosage: 1 INHALATION DOSING IN MORNING
     Route: 055
     Dates: start: 20151015, end: 20151130
  12. NVA237 [Suspect]
     Active Substance: GLYCOPYRROLATE
     Dosage: 44 UG, QD 1 INHALATION DOSING IN MORNING
     Route: 055
     Dates: start: 20160105, end: 20160403
  13. CAPTOPRIL. [Concomitant]
     Active Substance: CAPTOPRIL
     Indication: HYPERTENSION
     Dosage: UNK
     Route: 048
     Dates: start: 201508
  14. BERLINSULIN H BASAL [Concomitant]
     Active Substance: INSULIN HUMAN
     Indication: TYPE 2 DIABETES MELLITUS
     Dosage: UNK
     Route: 058
     Dates: start: 2004
  15. CICLOPIROX. [Concomitant]
     Active Substance: CICLOPIROX
     Indication: ONYCHOMYCOSIS
     Dosage: UNK
     Route: 062
     Dates: start: 20140815

REACTIONS (1)
  - Gastritis erosive [Recovered/Resolved]

NARRATIVE: CASE EVENT DATE: 20160329
